FAERS Safety Report 15985839 (Version 3)
Quarter: 2019Q1

REPORT INFORMATION
  Report Type: Report from Study
  Country: US (occurrence: US)
  Receive Date: 20190220
  Receipt Date: 20190329
  Transmission Date: 20190418
  Serious: Yes (Other)
  Sender: FDA-Public Use
  Company Number: PHHY2018US201295

PATIENT
  Age: 69 Year
  Sex: Male

DRUGS (1)
  1. KYMRIAH [Suspect]
     Active Substance: TISAGENLECLEUCEL
     Indication: DIFFUSE LARGE B-CELL LYMPHOMA
     Dosage: ONCE/SINGLE
     Route: 041
     Dates: start: 2018

REACTIONS (5)
  - Viral upper respiratory tract infection [Unknown]
  - Viral sinusitis [Unknown]
  - Respiratory syncytial virus infection [Unknown]
  - Cytokine release syndrome [Unknown]
  - Out of specification test results [Unknown]
